FAERS Safety Report 4775053-1 (Version None)
Quarter: 2005Q3

REPORT INFORMATION
  Report Type: 
  Country: None (occurrence: None)
  Receive Date: 20050921
  Receipt Date: 20050906
  Transmission Date: 20060218
  Serious: Yes (Hospitalization)
  Sender: FDA-Public Use
  Company Number: SEWYE954506SEP05

PATIENT
  Sex: Male

DRUGS (3)
  1. ENBREL [Suspect]
     Indication: PSORIATIC ARTHROPATHY
     Route: 040
     Dates: start: 20041206
  2. WEIFAPENIN [Interacting]
     Indication: TONSILLITIS STREPTOCOCCAL
     Route: 048
     Dates: start: 20050815, end: 20050815
  3. COZAAR [Concomitant]
     Indication: HYPERTENSION
     Route: 048
     Dates: start: 19990211

REACTIONS (5)
  - ANAPHYLACTIC REACTION [None]
  - BREAST PAIN [None]
  - DRUG INTERACTION [None]
  - STREPTOCOCCAL INFECTION [None]
  - TONSILLITIS STREPTOCOCCAL [None]
